FAERS Safety Report 5066022-5 (Version None)
Quarter: 2006Q3

REPORT INFORMATION
  Report Type: 
  Country: None (occurrence: None)
  Receive Date: 20060731
  Receipt Date: 20060731
  Transmission Date: 20061208
  Serious: Yes (Life-Threatening, Hospitalization, Other)
  Sender: FDA-Public Use
  Company Number: None

PATIENT
  Age: 42 Year
  Sex: Female
  Weight: 65.318 kg

DRUGS (10)
  1. METHOTREXATE [Suspect]
     Indication: RHEUMATOID ARTHRITIS
     Dosage: 20MG   WEEKLY    PO
     Route: 048
  2. HUMALOG [Concomitant]
  3. LEVAQUIN [Concomitant]
  4. ZOCOR [Concomitant]
  5. GLUCOPHAGE [Concomitant]
  6. METHOTREXATE [Concomitant]
  7. HYDROCHLOROTHIAZIDE [Concomitant]
  8. GLUCOTROL [Concomitant]
  9. PREDNISONE [Concomitant]
  10. ORAL CONTRACEPTIVE PILL [Concomitant]

REACTIONS (3)
  - CRYPTOGENIC ORGANISING PNEUMONIA [None]
  - INTERSTITIAL LUNG DISEASE [None]
  - RESPIRATORY DISTRESS [None]
